FAERS Safety Report 12973777 (Version 2)
Quarter: 2016Q4

REPORT INFORMATION
  Report Type: Spontaneous
  Country: GB (occurrence: GB)
  Receive Date: 20161124
  Receipt Date: 20161228
  Transmission Date: 20170207
  Serious: Yes (Death, Hospitalization, Other)
  Sender: FDA-Public Use
  Company Number: GB-BRISTOL-MYERS SQUIBB COMPANY-BMS-2016-098068

PATIENT
  Age: 76 Year
  Sex: Male

DRUGS (1)
  1. NIVOLUMAB [Suspect]
     Active Substance: NIVOLUMAB
     Indication: METASTATIC MALIGNANT MELANOMA
     Dosage: 2 CYCLES (DOSE NOT SPECIFIED)
     Route: 065
     Dates: start: 20161101

REACTIONS (12)
  - Malaise [Unknown]
  - Asthenia [Unknown]
  - Malignant neoplasm progression [Fatal]
  - Cardiac disorder [Fatal]
  - Diarrhoea [Unknown]
  - Lower respiratory tract infection [Unknown]
  - Dyspnoea [Unknown]
  - Hypoxia [Unknown]
  - Cardiac pacemaker insertion [Unknown]
  - Visual acuity reduced [Unknown]
  - Diplopia [Unknown]
  - Atrioventricular block [Unknown]

NARRATIVE: CASE EVENT DATE: 20161101
